FAERS Safety Report 25383356 (Version 2)
Quarter: 2025Q3

REPORT INFORMATION
  Report Type: Spontaneous
  Country: EU (occurrence: EU)
  Receive Date: 20250602
  Receipt Date: 20250924
  Transmission Date: 20251021
  Serious: Yes (Life-Threatening)
  Sender: ACCORD
  Company Number: None

PATIENT
  Age: 35 Year
  Sex: Female
  Weight: 65 kg

DRUGS (11)
  1. METHOTREXATE [Suspect]
     Active Substance: METHOTREXATE
     Indication: Acute biphenotypic leukaemia
     Dates: start: 20250303, end: 20250313
  2. CYCLOPHOSPHAMIDE [Suspect]
     Active Substance: CYCLOPHOSPHAMIDE
     Indication: Acute biphenotypic leukaemia
     Dates: start: 20250306, end: 20250308
  3. PONATINIB [Suspect]
     Active Substance: PONATINIB
     Indication: Acute biphenotypic leukaemia
     Dates: start: 20250312, end: 20250317
  4. CYTARABINE [Suspect]
     Active Substance: CYTARABINE
     Indication: Acute biphenotypic leukaemia
     Dates: start: 20250303, end: 20250313
  5. RITUXIMAB [Suspect]
     Active Substance: RITUXIMAB
     Indication: Acute biphenotypic leukaemia
     Dates: start: 20250312, end: 20250313
  6. TRIMEBUTINE [Concomitant]
     Active Substance: TRIMEBUTINE
  7. SPASFON [Concomitant]
  8. POSACONAZOLE [Concomitant]
     Active Substance: POSACONAZOLE
  9. NEFOPAM [Concomitant]
     Active Substance: NEFOPAM
  10. DEXAMETHASONE [Concomitant]
     Active Substance: DEXAMETHASONE
  11. TOBRAMYCIN SULFATE [Concomitant]
     Active Substance: TOBRAMYCIN SULFATE

REACTIONS (1)
  - Septic shock [Recovering/Resolving]

NARRATIVE: CASE EVENT DATE: 20250316
